FAERS Safety Report 22112094 (Version 1)
Quarter: 2023Q1

REPORT INFORMATION
  Report Type: Spontaneous
  Country: PT (occurrence: PT)
  Receive Date: 20230318
  Receipt Date: 20230318
  Transmission Date: 20230418
  Serious: Yes (Other)
  Sender: FDA-Public Use
  Company Number: PT-BEH-2023155879

PATIENT
  Age: 26 Year
  Sex: Female

DRUGS (1)
  1. ALBUMIN HUMAN [Suspect]
     Active Substance: ALBUMIN HUMAN
     Indication: Ovarian hyperstimulation syndrome
     Dosage: UNK
     Route: 065

REACTIONS (2)
  - Anaphylactic reaction [Unknown]
  - Off label use [Unknown]
